FAERS Safety Report 5724612-8 (Version None)
Quarter: 2008Q2

REPORT INFORMATION
  Report Type: 
  Country: None (occurrence: None)
  Receive Date: 20080430
  Receipt Date: 20080430
  Transmission Date: 20081010
  Serious: Yes (Other)
  Sender: FDA-Public Use
  Company Number: None

PATIENT
  Age: 31 Year
  Sex: Male
  Weight: 112 kg

DRUGS (12)
  1. EXJADE [Suspect]
     Indication: IRON OVERLOAD
     Dosage: 2000 MG ONCE DAILY
     Dates: start: 20070402
  2. SILDENAFIL CITRATE [Concomitant]
  3. HYDROXYUREA [Concomitant]
  4. DULOXETINE [Concomitant]
  5. ATENOLOL [Concomitant]
  6. MAGNESIUM OXIDE [Concomitant]
  7. HYDROXYZINE [Concomitant]
  8. PREGABALIN [Concomitant]
  9. FUROSEMIDE [Concomitant]
  10. METHADONE HCL [Concomitant]
  11. WARFARIN SODIUM [Concomitant]
  12. DOCUSATE [Concomitant]

REACTIONS (4)
  - INAPPROPRIATE SCHEDULE OF DRUG ADMINISTRATION [None]
  - MALAISE [None]
  - PHARMACEUTICAL PRODUCT COMPLAINT [None]
  - TREATMENT NONCOMPLIANCE [None]
